FAERS Safety Report 20441495 (Version 2)
Quarter: 2022Q1

REPORT INFORMATION
  Report Type: Spontaneous
  Country: JP (occurrence: JP)
  Receive Date: 20220208
  Receipt Date: 20220307
  Transmission Date: 20220424
  Serious: Yes (Hospitalization, Other)
  Sender: FDA-Public Use
  Company Number: JP-ALXN-A202015844

PATIENT
  Age: 71 Year
  Sex: Male
  Weight: 53 kg

DRUGS (10)
  1. SOLIRIS [Suspect]
     Active Substance: ECULIZUMAB
     Indication: Paroxysmal nocturnal haemoglobinuria
     Dosage: 600 MG, QW
     Route: 042
     Dates: start: 20121116, end: 20121207
  2. SOLIRIS [Suspect]
     Active Substance: ECULIZUMAB
     Dosage: 900 MG, Q2W
     Route: 042
     Dates: start: 20121214, end: 20191018
  3. CALORYL [Concomitant]
     Dosage: 16.05 G, TID
     Route: 048
     Dates: start: 20200727, end: 20200805
  4. CALORYL [Concomitant]
     Indication: Hepatic encephalopathy
     Dosage: 16.05 G, QID
     Route: 048
     Dates: start: 20181112, end: 20200726
  5. CALORYL [Concomitant]
     Dosage: 16.05 G, QID
     Route: 048
     Dates: start: 20200806
  6. INDERAL [Concomitant]
     Active Substance: PROPRANOLOL HYDROCHLORIDE
     Indication: Prophylaxis
     Dosage: 10 MG, TID
     Route: 048
     Dates: start: 20180130
  7. LEVOCARNITINE [Concomitant]
     Active Substance: LEVOCARNITINE
     Indication: Hepatic encephalopathy
     Dosage: 10 ML, QD
     Route: 048
     Dates: start: 20180418
  8. NEXIUM                             /01479302/ [Concomitant]
     Indication: Prophylaxis
     Dosage: 20 MG, QD
     Route: 048
     Dates: start: 20160408, end: 20200726
  9. NEXIUM                             /01479302/ [Concomitant]
     Dosage: 20 MG, QD
     Route: 048
     Dates: start: 20200806
  10. TADALAFIL [Concomitant]
     Active Substance: TADALAFIL
     Indication: Benign prostatic hyperplasia
     Dosage: 2.5 MG, QD
     Route: 048

REACTIONS (5)
  - Oesophageal varices haemorrhage [Recovered/Resolved]
  - Streptococcal bacteraemia [Recovered/Resolved]
  - Hepatic encephalopathy [Recovering/Resolving]
  - Colitis [Recovered/Resolved]
  - Constipation [Not Recovered/Not Resolved]

NARRATIVE: CASE EVENT DATE: 20170503
